FAERS Safety Report 4480558-7 (Version None)
Quarter: 2004Q4

REPORT INFORMATION
  Report Type: 
  Country: None (occurrence: None)
  Receive Date: 20041019
  Receipt Date: 20041006
  Transmission Date: 20050328
  Serious: Yes (Hospitalization)
  Sender: FDA-Public Use
  Company Number: 2004075953

PATIENT
  Age: 17 Year
  Sex: Female
  Weight: 55.5 kg

DRUGS (1)
  1. ZELDOX [Suspect]
     Indication: SCHIZOPHRENIA, PARANOID TYPE
     Dosage: 140 MG (1 IN 1 D), ORAL
     Route: 048
     Dates: start: 20031031, end: 20040212

REACTIONS (7)
  - BODY TEMPERATURE DECREASED [None]
  - FATIGUE [None]
  - GLUTAMATE DEHYDROGENASE LEVEL ABNORMAL [None]
  - HYPERSOMNIA [None]
  - HYPOMANIA [None]
  - IMPULSIVE BEHAVIOUR [None]
  - SOMNOLENCE [None]
